FAERS Safety Report 4373752-7 (Version None)
Quarter: 2004Q2

REPORT INFORMATION
  Report Type: 
  Country: None (occurrence: None)
  Receive Date: 20040603
  Receipt Date: 20040518
  Transmission Date: 20050107
  Serious: Yes (Other)
  Sender: FDA-Public Use
  Company Number: FR_040504151

PATIENT

DRUGS (5)
  1. ALIMTA [Suspect]
     Indication: PERITONEAL MESOTHELIOMA MALIGNANT
     Dosage: 500 MG/M2 1 OTHER
     Dates: start: 20040116
  2. CARBOPLATIN [Concomitant]
  3. FOLIC ACID [Concomitant]
  4. VITAMIN B-12 [Concomitant]
  5. DEXAMETHASONE [Concomitant]

REACTIONS (5)
  - ANOREXIA [None]
  - FATIGUE [None]
  - MUCOSAL INFLAMMATION [None]
  - SUBILEUS [None]
  - VOMITING [None]
